FAERS Safety Report 8896798 (Version 1)
Quarter: 2012Q4

REPORT INFORMATION
  Report Type: 
  Country: US (occurrence: US)
  Receive Date: 20121108
  Receipt Date: 20121108
  Transmission Date: 20130627
  Serious: No
  Sender: FDA-Public Use
  Company Number: US-ASTRAZENECA-2012SE84320

PATIENT
  Age: 54 Year
  Sex: Female

DRUGS (6)
  1. SEROQUEL [Suspect]
     Indication: POST-TRAUMATIC STRESS DISORDER
     Dosage: MORNING, BEFORE NOON
     Route: 048
  2. SEROQUEL [Suspect]
     Indication: SLEEP DISORDER
     Dosage: MORNING, BEFORE NOON
     Route: 048
  3. SEROQUEL [Suspect]
     Indication: ANXIETY
     Dosage: MORNING, BEFORE NOON
     Route: 048
  4. SEROQUEL [Suspect]
     Indication: POST-TRAUMATIC STRESS DISORDER
     Dosage: AT NIGHT
     Route: 048
  5. SEROQUEL [Suspect]
     Indication: SLEEP DISORDER
     Dosage: AT NIGHT
     Route: 048
  6. SEROQUEL [Suspect]
     Indication: ANXIETY
     Dosage: AT NIGHT
     Route: 048

REACTIONS (2)
  - Malaise [Unknown]
  - Drug dose omission [Unknown]
